FAERS Safety Report 5809776-X (Version None)
Quarter: 2008Q3

REPORT INFORMATION
  Report Type: 
  Country: None (occurrence: None)
  Receive Date: 20080715
  Receipt Date: 20080709
  Transmission Date: 20090109
  Serious: Yes (Other)
  Sender: FDA-Public Use
  Company Number: US-ASTRAZENECA-2008UW13751

PATIENT
  Age: 61 Year
  Sex: Female
  Weight: 90.7 kg

DRUGS (9)
  1. ARIMIDEX [Suspect]
     Indication: BREAST CANCER
     Route: 048
     Dates: start: 20070501
  2. METFORMIN [Concomitant]
  3. TRICOR [Concomitant]
  4. DIOVAN [Concomitant]
  5. CALCIUM [Concomitant]
  6. ENABLEX [Concomitant]
  7. ZANTAC [Concomitant]
  8. ASPIRIN [Concomitant]
  9. LORATADINE [Concomitant]

REACTIONS (4)
  - BACK PAIN [None]
  - FATIGUE [None]
  - MOOD SWINGS [None]
  - RECTAL HAEMORRHAGE [None]
